FAERS Safety Report 4503079-1 (Version None)
Quarter: 2004Q4

REPORT INFORMATION
  Report Type: 
  Country: None (occurrence: None)
  Receive Date: 20041112
  Receipt Date: 20041104
  Transmission Date: 20050328
  Serious: Yes (Life-Threatening, Hospitalization)
  Sender: FDA-Public Use
  Company Number: 230005M04DNK

PATIENT
  Age: 46 Year
  Sex: Male
  Weight: 55 kg

DRUGS (8)
  1. REBIF [Suspect]
     Indication: MULTIPLE SCLEROSIS
     Dosage: 22 MCG, 3 IN 1 WEEKS, SUBCUTANEOUS
     Route: 058
     Dates: start: 19990701
  2. INTERFERON BETA [Suspect]
     Indication: MULTIPLE SCLEROSIS
     Dosage: 30 MCG, 1 IN 1 WEEKS, SUBCUTANEOUS
     Route: 058
     Dates: start: 19971101
  3. DIAZEPAM [Concomitant]
  4. DRONABINOL [Concomitant]
  5. OXCARBAZEPINE [Concomitant]
  6. BACLOFEN [Concomitant]
  7. AMITRIPTYLINE HYDROCHLORIDE [Concomitant]
  8. OXYBUTYNIN [Concomitant]

REACTIONS (1)
  - MALIGNANT PALATE NEOPLASM [None]
